FAERS Safety Report 6136651-6 (Version None)
Quarter: 2009Q1

REPORT INFORMATION
  Report Type: 
  Country: None (occurrence: None)
  Receive Date: 20090330
  Receipt Date: 20090319
  Transmission Date: 20090719
  Serious: Yes (Life-Threatening)
  Sender: FDA-Public Use
  Company Number: B0563690A

PATIENT
  Sex: Female
  Weight: 18 kg

DRUGS (2)
  1. AUGMENTIN '125' [Suspect]
     Indication: LOWER RESPIRATORY TRACT INFECTION
     Dosage: 1680MG PER DAY
     Route: 048
     Dates: start: 20090225, end: 20090304
  2. VENTILAN [Concomitant]
     Indication: BRONCHOSPASM
     Dosage: 2ML PER DAY
     Route: 065
     Dates: start: 20090225, end: 20090301

REACTIONS (1)
  - SYNCOPE [None]
